FAERS Safety Report 5950408-8 (Version None)
Quarter: 2008Q4

REPORT INFORMATION
  Report Type: 
  Country: None (occurrence: None)
  Receive Date: 20081112
  Receipt Date: 20081104
  Transmission Date: 20090506
  Serious: Yes (Hospitalization)
  Sender: FDA-Public Use
  Company Number: US-BAYER-200824895NA

PATIENT
  Age: 73 Year
  Sex: Female

DRUGS (3)
  1. DACARBAZINE [Suspect]
     Indication: MALIGNANT MELANOMA
     Dosage: TOTAL DAILY DOSE: 2000 MG
     Route: 042
     Dates: start: 20080409
  2. DACARBAZINE [Suspect]
     Dosage: TOTAL DAILY DOSE: 1500 MG
     Route: 042
     Dates: start: 20080723
  3. DASATINIB [Suspect]
     Indication: MALIGNANT MELANOMA
     Dosage: TOTAL DAILY DOSE: 140 MG
     Route: 048
     Dates: start: 20080410, end: 20080810

REACTIONS (4)
  - ANAEMIA [None]
  - LOCALISED INFECTION [None]
  - NEUTROPENIA [None]
  - THROMBOCYTOPENIA [None]
